FAERS Safety Report 15338331 (Version 3)
Quarter: 2018Q3

REPORT INFORMATION
  Report Type: Spontaneous
  Country: US (occurrence: US)
  Receive Date: 20180831
  Receipt Date: 20180924
  Transmission Date: 20181010
  Serious: No
  Sender: FDA-Public Use
  Company Number: US-ALLERGAN-1841578US

PATIENT
  Age: 61 Year
  Sex: Female

DRUGS (4)
  1. LINZESS [Suspect]
     Active Substance: LINACLOTIDE
     Indication: IRRITABLE BOWEL SYNDROME
     Dosage: 290 ?G, QD
     Route: 065
     Dates: start: 201804
  2. LINZESS [Suspect]
     Active Substance: LINACLOTIDE
     Dosage: UNK, TID
     Route: 065
  3. LINZESS [Suspect]
     Active Substance: LINACLOTIDE
     Dosage: 145 ?G, UNK
     Route: 065
     Dates: start: 201804, end: 201804
  4. OXYCODONE [Concomitant]
     Active Substance: OXYCODONE
     Indication: BACK PAIN

REACTIONS (19)
  - Dermatitis diaper [Unknown]
  - Dehydration [Unknown]
  - Muscle tightness [Unknown]
  - Drug ineffective [Unknown]
  - Constipation [Unknown]
  - Anorectal discomfort [Unknown]
  - Headache [Unknown]
  - Abdominal pain upper [Unknown]
  - Dry skin [Not Recovered/Not Resolved]
  - Feeling abnormal [Recovered/Resolved]
  - Feeling of body temperature change [Unknown]
  - Pain [Unknown]
  - Diarrhoea [Unknown]
  - Skin atrophy [Unknown]
  - Confusional state [Recovered/Resolved]
  - Off label use [Unknown]
  - Alopecia [Not Recovered/Not Resolved]
  - Skin wound [Unknown]
  - Fatigue [Unknown]

NARRATIVE: CASE EVENT DATE: 2018
